FAERS Safety Report 10409437 (Version 2)
Quarter: 2014Q3

REPORT INFORMATION
  Report Type: Spontaneous
  Country: US (occurrence: None)
  Receive Date: 20140530
  Receipt Date: 20140904
  Transmission Date: 20150326
  Serious: No
  Sender: FDA-Public Use
  Company Number: 227251LEO

PATIENT
  Age: 58 Year
  Sex: Male

DRUGS (1)
  1. PICATO [Suspect]
     Active Substance: INGENOL MEBUTATE
     Indication: ACTINIC KERATOSIS
     Dosage: (1 IN 1 D), TOPICAL
     Route: 061
     Dates: start: 20140415, end: 20140417

REACTIONS (12)
  - Application site pustules [None]
  - Application site erythema [None]
  - Visual impairment [None]
  - Erythema [None]
  - Application site pruritus [None]
  - Application site vesicles [None]
  - Application site scab [None]
  - Application site erosion [None]
  - Inappropriate schedule of drug administration [None]
  - Application site irritation [None]
  - Application site pain [None]
  - Eye swelling [None]

NARRATIVE: CASE EVENT DATE: 20140415
